FAERS Safety Report 5253217-0 (Version None)
Quarter: 2007Q1

REPORT INFORMATION
  Report Type: 
  Country: None (occurrence: None)
  Receive Date: 20070301
  Receipt Date: 20070223
  Transmission Date: 20070707
  Serious: Yes (Hospitalization, Other)
  Sender: FDA-Public Use
  Company Number: 2007UW03616

PATIENT
  Age: 70 Year
  Sex: Female

DRUGS (3)
  1. CRESTOR [Suspect]
     Route: 048
     Dates: end: 20070101
  2. CRESTOR [Suspect]
     Route: 048
     Dates: start: 20070101
  3. UNKNOWN HEART MEDICATIONS [Concomitant]

REACTIONS (2)
  - BLOOD CREATINE PHOSPHOKINASE [None]
  - MYOCARDIAL INFARCTION [None]
